FAERS Safety Report 7487352-3 (Version None)
Quarter: 2011Q2

REPORT INFORMATION
  Report Type: 
  Country: None (occurrence: None)
  Receive Date: 20110510
  Receipt Date: 20110425
  Transmission Date: 20111010
  Serious: Yes (Other)
  Sender: FDA-Public Use
  Company Number: 031804

PATIENT
  Sex: Female
  Weight: 61 kg

DRUGS (5)
  1. METHOTREXATE [Concomitant]
  2. PLAQUENIL [Concomitant]
  3. CELEBREX [Concomitant]
  4. SYNTHROID [Concomitant]
  5. CIMZIA [Suspect]
     Indication: RHEUMATOID ARTHRITIS
     Dosage: (200 MG 1X2 WEEKS SUBCUTANEOUS)
     Route: 058
     Dates: start: 20091116

REACTIONS (2)
  - EAR INFECTION [None]
  - DEAFNESS UNILATERAL [None]
